FAERS Safety Report 8600834 (Version 2)
Quarter: 2012Q4

REPORT INFORMATION
  Report Type: 
  Country: US (occurrence: US)
  Receive Date: 20120606
  Receipt Date: 20121023
  Transmission Date: 20130627
  Serious: Yes (Hospitalization, Other)
  Sender: FDA-Public Use
  Company Number: US-BAYER-2012-055421

PATIENT
  Age: 26 Year
  Sex: Female
  Weight: 104.31 kg

DRUGS (9)
  1. YASMIN [Suspect]
     Indication: CONTRACEPTION
     Dosage: UNK
     Dates: start: 20070516, end: 20080702
  2. OCELLA [Suspect]
     Indication: CONTRACEPTION
     Dosage: UNK
     Dates: start: 20080702, end: 20080728
  3. PRILOSEC [Concomitant]
     Indication: GASTROOESOPHAGEAL REFLUX DISEASE
  4. CIPROFLOXACIN [Concomitant]
  5. DILAUDID [Concomitant]
     Indication: PAIN MANAGEMENT
  6. ZOFRAN [Concomitant]
     Indication: NAUSEA
  7. PROTONIX [Concomitant]
  8. FLAGYL [Concomitant]
  9. LOPRESSOR [Concomitant]

REACTIONS (12)
  - Pulmonary embolism [None]
  - Deep vein thrombosis [None]
  - Thrombosis mesenteric vessel [None]
  - Injury [None]
  - Pain [None]
  - Pain [None]
  - Gastrointestinal perforation [None]
  - Gastrointestinal necrosis [None]
  - Pericardial effusion [None]
  - Gastrointestinal inflammation [None]
  - Abdominal pain [None]
  - Aphagia [None]
